FAERS Safety Report 10751071 (Version 2)
Quarter: 2015Q2

REPORT INFORMATION
  Report Type: Spontaneous
  Country: CN (occurrence: CN)
  Receive Date: 20150130
  Receipt Date: 20150423
  Transmission Date: 20150821
  Serious: Yes (Other)
  Sender: FDA-Public Use
  Company Number: CN-BAYER-2015-009621

PATIENT
  Age: 41 Year
  Sex: Female

DRUGS (1)
  1. YASMIN [Suspect]
     Active Substance: DROSPIRENONE\ETHINYL ESTRADIOL
     Indication: ENDOMETRIAL DISORDER
     Dosage: UNK
     Dates: start: 20140825, end: 201410

REACTIONS (10)
  - Depressed mood [Recovering/Resolving]
  - Anxiety [Recovering/Resolving]
  - Product use issue [None]
  - Crying [Recovering/Resolving]
  - Mood swings [Recovering/Resolving]
  - Decreased appetite [Recovering/Resolving]
  - Depression [Recovering/Resolving]
  - Dysphoria [Recovering/Resolving]
  - Suicidal ideation [Recovered/Resolved]
  - Abnormal dreams [Recovering/Resolving]

NARRATIVE: CASE EVENT DATE: 20140825
